FAERS Safety Report 4373734-5 (Version None)
Quarter: 2004Q2

REPORT INFORMATION
  Report Type: 
  Country: None (occurrence: None)
  Receive Date: 20040607
  Receipt Date: 20040607
  Transmission Date: 20050107
  Serious: Yes (Other)
  Sender: FDA-Public Use
  Company Number: None

PATIENT
  Sex: Female
  Weight: 77.1 kg

DRUGS (1)
  1. PAROXETINE 20 MG TORPHARM [Suspect]
     Indication: DEPRESSION
     Dosage: 29 MG QD ORAL
     Route: 048
     Dates: start: 19940501, end: 20040604

REACTIONS (4)
  - CHEST PAIN [None]
  - PARKINSON'S DISEASE [None]
  - TARDIVE DYSKINESIA [None]
  - TREMOR [None]
